FAERS Safety Report 8877198 (Version 2)
Quarter: 2013Q3

REPORT INFORMATION
  Report Type: Spontaneous
  Country: US (occurrence: US)
  Receive Date: 20121023
  Receipt Date: 20130930
  Transmission Date: 20140515
  Serious: No
  Sender: FDA-Public Use
  Company Number: US-AMGEN-USASP2012017451

PATIENT
  Age: 33 Year
  Sex: Female
  Weight: 68.03 kg

DRUGS (12)
  1. ENBREL [Suspect]
     Indication: PSORIATIC ARTHROPATHY
     Dosage: 50 MG, QWK
     Route: 058
     Dates: start: 20120223
  2. ENBREL [Suspect]
     Indication: RHEUMATOID ARTHRITIS
  3. APRISO [Concomitant]
     Dosage: 0.375 G, QID
     Route: 048
     Dates: start: 20120228
  4. LIALDA [Concomitant]
     Dosage: 2/4, DAY
     Dates: start: 2007
  5. PREDNISONE [Concomitant]
     Dosage: 5 MG, TID
     Route: 048
     Dates: start: 20120201
  6. PRENATAL VITAMINS                  /01549301/ [Concomitant]
     Dosage: UNK UNK, QD
     Route: 048
     Dates: start: 20111001
  7. FISH OIL [Concomitant]
     Dosage: 1000 MG, TID
     Dates: start: 2011
  8. HUMIRA [Concomitant]
     Dosage: 40 MG, Q2WK
     Dates: start: 20120906
  9. ZOLOFT [Concomitant]
     Dosage: 50 MG, QD
     Dates: start: 201206
  10. VITAMIN B12                        /00056201/ [Concomitant]
     Dosage: 1 ML, QMO
     Dates: start: 20120620
  11. FOLIC ACID [Concomitant]
     Dosage: UNK UNK, QD
     Dates: start: 20130704
  12. INFLUENZA VACCINE [Concomitant]
     Dosage: UNK

REACTIONS (2)
  - Injection site bruising [Not Recovered/Not Resolved]
  - Injection site pain [Recovered/Resolved]
